FAERS Safety Report 4475735-5 (Version None)
Quarter: 2004Q4

REPORT INFORMATION
  Report Type: 
  Country: None (occurrence: None)
  Receive Date: 20041015
  Receipt Date: 20041006
  Transmission Date: 20050328
  Serious: Yes (Hospitalization)
  Sender: FDA-Public Use
  Company Number: GB-AMGEN-UK094478

PATIENT
  Sex: Female
  Weight: 70.8 kg

DRUGS (5)
  1. NEULASTA [Suspect]
     Indication: CHEMOTHERAPY
     Route: 065
     Dates: start: 20040701
  2. NEUPOGEN [Suspect]
     Indication: CHEMOTHERAPY
     Dates: start: 20040801
  3. FLUOROURACIL [Suspect]
     Route: 042
     Dates: start: 20040715
  4. EPIRUBICIN [Suspect]
     Route: 042
     Dates: start: 20040715
  5. CYCLOPHOSPHAMIDE [Suspect]
     Route: 042
     Dates: start: 20040715

REACTIONS (4)
  - DRUG INEFFECTIVE [None]
  - NEUTROPENIA [None]
  - PYREXIA [None]
  - STOMATITIS [None]
